FAERS Safety Report 16758902 (Version 1)
Quarter: 2019Q3

REPORT INFORMATION
  Report Type: Spontaneous
  Country: US (occurrence: US)
  Receive Date: 20190711
  Receipt Date: 20190711
  Transmission Date: 20191005
  Serious: Yes (Hospitalization)
  Sender: FDA-Public Use
  Company Number: None

PATIENT
  Age: 79 Year
  Sex: Male
  Weight: 88 kg

DRUGS (1)
  1. LENALIDOMIDE (CC-5013) [Suspect]
     Active Substance: LENALIDOMIDE
     Dates: end: 20190630

REACTIONS (6)
  - Herpes zoster [None]
  - Fall [None]
  - Platelet count decreased [None]
  - Asthenia [None]
  - Therapy cessation [None]
  - Balance disorder [None]

NARRATIVE: CASE EVENT DATE: 20190630
